FAERS Safety Report 15648509 (Version 1)
Quarter: 2018Q4

REPORT INFORMATION
  Report Type: Spontaneous
  Country: FR (occurrence: FR)
  Receive Date: 20181122
  Receipt Date: 20181122
  Transmission Date: 20190205
  Serious: Yes (Hospitalization, Other)
  Sender: FDA-Public Use
  Company Number: FR-PROVELL PHARMACEUTICALS-2059207

PATIENT
  Age: 44 Year
  Sex: Female

DRUGS (1)
  1. EUTHYROX [Suspect]
     Active Substance: LEVOTHYROXINE SODIUM
     Indication: THYROID DISORDER
     Dates: start: 201703, end: 201711

REACTIONS (17)
  - Anxiety [None]
  - Blood pressure increased [None]
  - Headache [None]
  - Serum ferritin decreased [None]
  - Palpitations [None]
  - Blood creatine phosphokinase increased [Not Recovered/Not Resolved]
  - Throat irritation [None]
  - Uterine leiomyoma [None]
  - Blood thyroid stimulating hormone increased [None]
  - Blood urea decreased [None]
  - Myalgia [None]
  - Blood creatine increased [None]
  - Dizziness [None]
  - Creatinine renal clearance decreased [None]
  - Tachycardia [None]
  - Oropharyngeal pain [None]
  - Tinnitus [None]

NARRATIVE: CASE EVENT DATE: 2017
